FAERS Safety Report 23068978 (Version 1)
Quarter: 2023Q4

REPORT INFORMATION
  Report Type: Spontaneous
  Country: US (occurrence: US)
  Receive Date: 20231016
  Receipt Date: 20231016
  Transmission Date: 20240110
  Serious: Yes (Hospitalization)
  Sender: FDA-Public Use
  Company Number: US-MYLANLABS-2023M1107989

PATIENT
  Age: 43 Year
  Sex: Female

DRUGS (3)
  1. HEPARIN [Suspect]
     Active Substance: HEPARIN SODIUM
     Indication: Vena cava thrombosis
     Dosage: UNK
     Route: 065
  2. HEPARIN [Suspect]
     Active Substance: HEPARIN SODIUM
     Indication: Renal vein thrombosis
  3. HEPARIN [Suspect]
     Active Substance: HEPARIN SODIUM
     Indication: Renal infarct

REACTIONS (1)
  - Drug ineffective [Unknown]
